FAERS Safety Report 11457268 (Version 2)
Quarter: 2015Q4

REPORT INFORMATION
  Report Type: Spontaneous
  Country: US (occurrence: US)
  Receive Date: 20150904
  Receipt Date: 20151014
  Transmission Date: 20160304
  Serious: Yes (Life-Threatening, Other)
  Sender: FDA-Public Use
  Company Number: US-ASTRAZENECA-2015SE83462

PATIENT
  Sex: Female
  Weight: 53.8 kg

DRUGS (24)
  1. FASLODEX [Suspect]
     Active Substance: FULVESTRANT
     Route: 030
     Dates: start: 20131121, end: 20150312
  2. DILTIAZEM [Concomitant]
     Active Substance: DILTIAZEM
  3. LASIX [Concomitant]
     Active Substance: FUROSEMIDE
  4. ENULOSE [Concomitant]
     Active Substance: LACTULOSE
  5. EXEMESTANE. [Concomitant]
     Active Substance: EXEMESTANE
     Route: 048
  6. PACERONE [Concomitant]
     Active Substance: AMIODARONE HYDROCHLORIDE
  7. BEANO [Concomitant]
     Active Substance: ASPERGILLUS NIGER .ALPHA.-GALACTOSIDASE
  8. CEROVITE [Concomitant]
  9. TRAMADOL. [Concomitant]
     Active Substance: TRAMADOL
  10. GLUCOSAMINE CHONDROITIN [Concomitant]
     Active Substance: CHONDROITIN SULFATE (BOVINE)\GLUCOSAMINE HYDROCHLORIDE
  11. METOPROLOL [Suspect]
     Active Substance: METOPROLOL
     Route: 048
  12. SYNTHROID [Concomitant]
     Active Substance: LEVOTHYROXINE SODIUM
  13. GABAPENTIN. [Concomitant]
     Active Substance: GABAPENTIN
  14. LOPERAMIDE [Concomitant]
     Active Substance: LOPERAMIDE
  15. BENADRYL [Concomitant]
     Active Substance: DIPHENHYDRAMINE HYDROCHLORIDE
  16. OMEPRAZOLE. [Concomitant]
     Active Substance: OMEPRAZOLE
  17. HYDROXYZINE [Concomitant]
     Active Substance: HYDROXYZINE\HYDROXYZINE HYDROCHLORIDE
  18. PROMETHAZINE [Concomitant]
     Active Substance: PROMETHAZINE\PROMETHAZINE HYDROCHLORIDE
  19. SPIRONOLACTONE. [Concomitant]
     Active Substance: SPIRONOLACTONE
  20. LUTEIN [Concomitant]
     Active Substance: LUTEIN
  21. FIBERCON [Concomitant]
     Active Substance: CALCIUM POLYCARBOPHIL
  22. CALCIUM + D [Concomitant]
     Active Substance: CALCIUM\VITAMIN D
  23. COLACE [Concomitant]
     Active Substance: DOCUSATE SODIUM
  24. MIRALAX [Concomitant]
     Active Substance: POLYETHYLENE GLYCOL 3350

REACTIONS (5)
  - Head discomfort [Recovered/Resolved]
  - Loss of consciousness [Recovered/Resolved]
  - Chest discomfort [Recovered/Resolved]
  - Cough [Recovered/Resolved]
  - Nausea [Recovered/Resolved]

NARRATIVE: CASE EVENT DATE: 20150312
